FAERS Safety Report 16400287 (Version 1)
Quarter: 2019Q2

REPORT INFORMATION
  Report Type: Spontaneous
  Country: US (occurrence: US)
  Receive Date: 20190501
  Receipt Date: 20190501
  Transmission Date: 20190711
  Serious: No
  Sender: FDA-Public Use
  Company Number: None

PATIENT
  Age: 78 Year
  Sex: Female

DRUGS (1)
  1. ENBREL [Suspect]
     Active Substance: ETANERCEPT
     Dates: start: 20190415, end: 20190415

REACTIONS (2)
  - Injection site pain [None]
  - Wrong technique in device usage process [None]

NARRATIVE: CASE EVENT DATE: 20190415
